FAERS Safety Report 25102329 (Version 2)
Quarter: 2025Q3

REPORT INFORMATION
  Report Type: Report from Study
  Country: US (occurrence: US)
  Receive Date: 20250320
  Receipt Date: 20250802
  Transmission Date: 20251021
  Serious: Yes (Hospitalization, Other)
  Sender: ALEXION PHARMACEUTICALS
  Company Number: US-ASTRAZENECA-202503USA012991US

PATIENT
  Sex: Female

DRUGS (1)
  1. OLAPARIB [Suspect]
     Active Substance: OLAPARIB
     Indication: Peritoneal cancer index
     Dosage: 250 MILLIGRAM, BID
     Dates: start: 2022

REACTIONS (8)
  - Strangulated hernia [Unknown]
  - Small intestinal obstruction [Unknown]
  - Wound dehiscence [Unknown]
  - Nausea [Recovered/Resolved]
  - Vomiting [Recovered/Resolved]
  - Bronchitis [Unknown]
  - Asthenia [Unknown]
  - Product dose omission issue [Unknown]
